FAERS Safety Report 4357463-X (Version None)
Quarter: 2004Q2

REPORT INFORMATION
  Report Type: 
  Country: None (occurrence: None)
  Receive Date: 20040511
  Receipt Date: 20040511
  Transmission Date: 20050107
  Serious: Yes (Hospitalization)
  Sender: FDA-Public Use
  Company Number: None

PATIENT
  Age: 72 Year
  Sex: Male
  Weight: 77.7 kg

DRUGS (9)
  1. VIOXX [Suspect]
     Indication: RADICULAR PAIN
  2. PREDNISONE [Suspect]
     Indication: RADICULAR PAIN
     Dosage: A TAPER
  3. FLUOROURACIL [Concomitant]
  4. CISPLATIN [Concomitant]
  5. COZAAR [Concomitant]
  6. ZANTAC [Concomitant]
  7. PERCOCET [Concomitant]
  8. TRIAMTERENE [Concomitant]
  9. COMPAZINE [Concomitant]

REACTIONS (7)
  - DIZZINESS [None]
  - ENDOSCOPY ABNORMAL [None]
  - GASTRIC ULCER [None]
  - HAEMOGLOBIN DECREASED [None]
  - MELAENA [None]
  - SYNCOPE [None]
  - ULCER HAEMORRHAGE [None]
